FAERS Safety Report 14549198 (Version 3)
Quarter: 2018Q2

REPORT INFORMATION
  Report Type: Report from Study
  Country: US (occurrence: US)
  Receive Date: 20180219
  Receipt Date: 20180510
  Transmission Date: 20180711
  Serious: No
  Sender: FDA-Public Use
  Company Number: PHEH2018US006795

PATIENT
  Age: 48 Year
  Sex: Female

DRUGS (2)
  1. COSENTYX [Suspect]
     Active Substance: SECUKINUMAB
     Indication: PSORIASIS
     Dosage: 300 MG, QMO
     Route: 058
     Dates: start: 20180119
  2. COSENTYX [Suspect]
     Active Substance: SECUKINUMAB
     Dosage: 150 MG, QW
     Route: 058

REACTIONS (5)
  - Upper respiratory tract infection [Unknown]
  - Incorrect dose administered [Unknown]
  - Skin sensitisation [Not Recovered/Not Resolved]
  - Infection [Unknown]
  - Limb injury [Unknown]

NARRATIVE: CASE EVENT DATE: 20180206
